FAERS Safety Report 7002463-4 (Version None)
Quarter: 2010Q3

REPORT INFORMATION
  Report Type: 
  Country: None (occurrence: None)
  Receive Date: 20100917
  Receipt Date: 20100917
  Transmission Date: 20110219
  Serious: Yes (Hospitalization, Disabling, Other)
  Sender: FDA-Public Use
  Company Number: None

PATIENT
  Age: 63 Year
  Sex: Female
  Weight: 58.0604 kg

DRUGS (1)
  1. AZITHROMYCIN [Suspect]

REACTIONS (6)
  - ASTHENIA [None]
  - CONSTIPATION [None]
  - DECREASED APPETITE [None]
  - GASTRITIS [None]
  - NAUSEA [None]
  - WEIGHT DECREASED [None]
